FAERS Safety Report 13213133 (Version 1)
Quarter: 2017Q1

REPORT INFORMATION
  Report Type: Spontaneous
  Country: FR (occurrence: FR)
  Receive Date: 20170210
  Receipt Date: 20170210
  Transmission Date: 20170428
  Serious: Yes (Death)
  Sender: FDA-Public Use
  Company Number: FR-UCBSA-2017005428

PATIENT
  Age: 80 Year
  Sex: Female

DRUGS (6)
  1. RIVOTRIL [Suspect]
     Active Substance: CLONAZEPAM
     Indication: STATUS EPILEPTICUS
     Dosage: 1MG/ML
     Route: 042
     Dates: start: 20170110, end: 20170111
  2. LOVENOX [Suspect]
     Active Substance: ENOXAPARIN SODIUM
     Indication: THROMBOSIS PROPHYLAXIS
     Dosage: 4000 IU, ONE TIME DOSE
     Route: 058
     Dates: start: 20170111, end: 20170111
  3. VIMPAT [Suspect]
     Active Substance: LACOSAMIDE
     Indication: STATUS EPILEPTICUS
     Dosage: 200 MG, ONE TIME DOSE
     Route: 042
     Dates: start: 20170111, end: 20170111
  4. VIMPAT [Suspect]
     Active Substance: LACOSAMIDE
     Indication: OFF LABEL USE
  5. TEMESTA [Concomitant]
     Active Substance: LORAZEPAM
     Indication: ANXIETY
     Dosage: 0.25 MG, ONCE DAILY (QD) (1MG-? TABLET AT BEDTIME )
     Route: 048
     Dates: end: 20170111
  6. URBANYL [Suspect]
     Active Substance: CLOBAZAM
     Indication: STATUS EPILEPTICUS
     Dosage: 10 MG, ONE TIME DOSE
     Route: 048
     Dates: start: 20170111, end: 20170111

REACTIONS (2)
  - Off label use [Unknown]
  - Cardio-respiratory arrest [Fatal]

NARRATIVE: CASE EVENT DATE: 20170111
